FAERS Safety Report 4438289-5 (Version None)
Quarter: 2004Q3

REPORT INFORMATION
  Report Type: 
  Country: None (occurrence: None)
  Receive Date: 20040831
  Receipt Date: 20040709
  Transmission Date: 20050211
  Serious: No
  Sender: FDA-Public Use
  Company Number: US-GLAXOSMITHKLINE-A0517681A

PATIENT
  Age: 46 Year
  Sex: Female

DRUGS (7)
  1. WELLBUTRIN XL [Suspect]
     Indication: FIBROMYALGIA
     Dosage: 300MG PER DAY
     Route: 048
     Dates: start: 20040524
  2. DHEA [Suspect]
  3. FOSAMAX [Concomitant]
  4. SOMA [Concomitant]
  5. ULTRACET [Concomitant]
  6. COMBIPATCH [Concomitant]
  7. GINSENG [Concomitant]

REACTIONS (1)
  - LOCAL SWELLING [None]
